FAERS Safety Report 12695983 (Version 3)
Quarter: 2016Q4

REPORT INFORMATION
  Report Type: Spontaneous
  Country: IT (occurrence: IT)
  Receive Date: 20160829
  Receipt Date: 20161223
  Transmission Date: 20170207
  Serious: Yes (Hospitalization)
  Sender: FDA-Public Use
  Company Number: IT-009507513-1608ITA012575

PATIENT
  Age: 69 Year
  Sex: Female

DRUGS (3)
  1. SOVALDI [Suspect]
     Active Substance: SOFOSBUVIR
     Indication: CHRONIC HEPATITIS C
     Dosage: 400 MG, DAILY
     Route: 048
     Dates: start: 20160330, end: 20160614
  2. REBETOL [Suspect]
     Active Substance: RIBAVIRIN
     Indication: CHRONIC HEPATITIS C
     Dosage: 800 MG, DAILY
     Route: 048
     Dates: start: 20160330
  3. DIBASE [Concomitant]
     Active Substance: CHOLECALCIFEROL
     Dosage: 10000IU/ML, FORMULATION: 30 DROPS
     Route: 048
     Dates: start: 20160101, end: 20160614

REACTIONS (2)
  - Brain neoplasm [Unknown]
  - Ataxia [Unknown]

NARRATIVE: CASE EVENT DATE: 20160614
